FAERS Safety Report 23487263 (Version 1)
Quarter: 2024Q1

REPORT INFORMATION
  Report Type: Spontaneous
  Country: US (occurrence: None)
  Receive Date: 20240206
  Receipt Date: 20240206
  Transmission Date: 20240409
  Serious: Yes (Hospitalization)
  Sender: FDA-Public Use
  Company Number: None

PATIENT
  Age: 47 Year
  Sex: Female
  Weight: 74.9 kg

DRUGS (3)
  1. CYTARABINE [Suspect]
     Active Substance: CYTARABINE
     Dates: end: 20240124
  2. METHOTREXATE [Suspect]
     Active Substance: METHOTREXATE
     Dates: end: 20240123
  3. PONATINIB [Suspect]
     Active Substance: PONATINIB
     Dates: end: 20240131

REACTIONS (3)
  - Febrile neutropenia [None]
  - Tachycardia [None]
  - Diarrhoea [None]

NARRATIVE: CASE EVENT DATE: 20240201
